FAERS Safety Report 12089978 (Version 1)
Quarter: 2016Q1

REPORT INFORMATION
  Report Type: Spontaneous
  Country: US (occurrence: US)
  Receive Date: 20160218
  Receipt Date: 20160218
  Transmission Date: 20160526
  Serious: No
  Sender: FDA-Public Use
  Company Number: PHEH2016US003604

PATIENT
  Sex: Female

DRUGS (4)
  1. XANAX [Concomitant]
     Active Substance: ALPRAZOLAM
     Indication: PRODUCT USED FOR UNKNOWN INDICATION
     Dosage: UNK, HS
     Route: 065
  2. TASIGNA [Suspect]
     Active Substance: NILOTINIB
     Dosage: 150 MG, BID
     Route: 065
  3. ZOLOFT [Concomitant]
     Active Substance: SERTRALINE HYDROCHLORIDE
     Indication: PRODUCT USED FOR UNKNOWN INDICATION
     Dosage: 100 MG, QD
     Route: 065
  4. TASIGNA [Suspect]
     Active Substance: NILOTINIB
     Indication: GASTROINTESTINAL STROMAL TUMOUR
     Dosage: BETWEEN 200 MG AND 150 MG, BID
     Route: 065

REACTIONS (7)
  - Fatigue [Not Recovered/Not Resolved]
  - Arthralgia [Not Recovered/Not Resolved]
  - Nausea [Not Recovered/Not Resolved]
  - Sensitivity of teeth [Not Recovered/Not Resolved]
  - Product use issue [Unknown]
  - Tooth disorder [Not Recovered/Not Resolved]
  - Dental caries [Not Recovered/Not Resolved]
